FAERS Safety Report 6738981-3 (Version None)
Quarter: 2010Q2

REPORT INFORMATION
  Report Type: 
  Country: None (occurrence: None)
  Receive Date: 20100524
  Receipt Date: 20100524
  Transmission Date: 20101027
  Serious: Yes (Life-Threatening)
  Sender: FDA-Public Use
  Company Number: None

PATIENT
  Age: 50 Year
  Sex: Male
  Weight: 97.5234 kg

DRUGS (2)
  1. METOPROLOL SUCCINATE EXTENDED RELEASE [Suspect]
     Indication: HEART VALVE INCOMPETENCE
     Dosage: 50MG ONCE DAILY PO
     Route: 048
     Dates: start: 20100318, end: 20100418
  2. METOPROLOL SUCCINATE EXTENDED RELEASE [Suspect]
     Indication: PALPITATIONS
     Dosage: 50MG ONCE DAILY PO
     Route: 048
     Dates: start: 20100318, end: 20100418

REACTIONS (5)
  - DIZZINESS [None]
  - PRESYNCOPE [None]
  - PRODUCT SUBSTITUTION ISSUE [None]
  - TABLET ISSUE [None]
  - THERAPEUTIC RESPONSE UNEXPECTED [None]
